FAERS Safety Report 10077873 (Version 5)
Quarter: 2014Q3

REPORT INFORMATION
  Report Type: Report from Study
  Country: US (occurrence: US)
  Receive Date: 20140414
  Receipt Date: 20140814
  Transmission Date: 20150326
  Serious: Yes (Hospitalization, Other)
  Sender: FDA-Public Use
  Company Number: US-BRISTOL-MYERS SQUIBB COMPANY-20596029

PATIENT
  Age: 62 Year
  Sex: Female
  Weight: 111.2 kg

DRUGS (1)
  1. IPILIMUMAB [Suspect]
     Active Substance: IPILIMUMAB
     Indication: MALIGNANT MELANOMA
     Dosage: 10MG/KG IV OVER 90 MINS, Q 12 WEEKS ON WEEKS 24, 36, 48, + 60.?LAST DOSE:1097 MG ON 03-03-14
     Route: 042
     Dates: start: 20140120

REACTIONS (4)
  - Sepsis [Recovered/Resolved]
  - Renal failure acute [Recovered/Resolved]
  - Acute respiratory failure [Unknown]
  - Acute myocardial infarction [Recovered/Resolved]

NARRATIVE: CASE EVENT DATE: 2014
